FAERS Safety Report 5291334-X (Version None)
Quarter: 2007Q2

REPORT INFORMATION
  Report Type: 
  Country: None (occurrence: None)
  Receive Date: 20070403
  Receipt Date: 20070327
  Transmission Date: 20071010
  Serious: Yes (Other)
  Sender: FDA-Public Use
  Company Number: PAR_1246_2007

PATIENT
  Sex: 0

DRUGS (1)
  1. PERGOLIDE MESYLATE [Suspect]
     Dosage: DF

REACTIONS (6)
  - AORTIC VALVE INCOMPETENCE [None]
  - CARDIAC VALVE DISEASE [None]
  - DYSPNOEA [None]
  - HEART VALVE INSUFFICIENCY [None]
  - MITRAL VALVE INCOMPETENCE [None]
  - OEDEMA [None]
